FAERS Safety Report 11722703 (Version 1)
Quarter: 2015Q4

REPORT INFORMATION
  Report Type: Spontaneous
  Country: US (occurrence: None)
  Receive Date: 20151110
  Receipt Date: 20151110
  Transmission Date: 20160304
  Serious: Yes (Disabling, Other)
  Sender: FDA-Public Use
  Company Number: None

PATIENT
  Age: 60 Year
  Sex: Male
  Weight: 114.31 kg

DRUGS (9)
  1. AMLODIPINE [Concomitant]
     Active Substance: AMLODIPINE BESYLATE
  2. ASA [Concomitant]
     Active Substance: ASPIRIN
  3. METOPROLOL [Concomitant]
     Active Substance: METOPROLOL
  4. VIEKIRA PAK [Suspect]
     Active Substance: DASABUVIR\OMBITASVIR\PARITAPREVIR\RITONAVIR
     Indication: CHRONIC HEPATITIS C
     Dosage: AS DIRECTED
     Route: 048
     Dates: start: 20150825, end: 20151023
  5. ATORVASTATIN [Concomitant]
     Active Substance: ATORVASTATIN
  6. HYDROXYZINE [Concomitant]
     Active Substance: HYDROXYZINE\HYDROXYZINE HYDROCHLORIDE
  7. FUROSEMIDE. [Concomitant]
     Active Substance: FUROSEMIDE
  8. PROAIR HFA [Concomitant]
     Active Substance: ALBUTEROL SULFATE
  9. LISINOPRIL. [Concomitant]
     Active Substance: LISINOPRIL

REACTIONS (6)
  - Blood creatinine increased [None]
  - Asthenia [None]
  - Confusional state [None]
  - Muscular weakness [None]
  - Gait disturbance [None]
  - Oedema [None]

NARRATIVE: CASE EVENT DATE: 20151007
